APPROVED DRUG PRODUCT: FELBAMATE
Active Ingredient: FELBAMATE
Strength: 600MG/5ML
Dosage Form/Route: SUSPENSION;ORAL
Application: A202385 | Product #001 | TE Code: AB
Applicant: AMNEAL PHARMACEUTICALS
Approved: Dec 16, 2011 | RLD: No | RS: No | Type: RX